FAERS Safety Report 12976452 (Version 1)
Quarter: 2016Q4

REPORT INFORMATION
  Report Type: Spontaneous
  Country: US (occurrence: US)
  Receive Date: 20161127
  Receipt Date: 20161127
  Transmission Date: 20170207
  Serious: Yes (Hospitalization)
  Sender: FDA-Public Use
  Company Number: PHEH1998US10771

PATIENT
  Age: 48 Year
  Sex: Male

DRUGS (9)
  1. PANTOTHENIC ACID (PANTOTHENIC ACID) [Concomitant]
     Indication: PRODUCT USED FOR UNKNOWN INDICATION
     Dosage: 1500 MG, QD
     Route: 048
  2. RISPERIDONE. [Suspect]
     Active Substance: RISPERIDONE
     Indication: SCHIZOPHRENIA
     Route: 065
  3. CLONAZEPAM (CLONAZEPAM) [Concomitant]
     Active Substance: CLONAZEPAM
     Indication: PRODUCT USED FOR UNKNOWN INDICATION
     Dosage: 2 MG, QD
     Route: 048
  4. MULTIVITAMIN (MULTIVITAMINS) [Concomitant]
     Indication: PRODUCT USED FOR UNKNOWN INDICATION
     Dosage: TAB 1
     Route: 048
  5. CHROMIUM PICOLONATE (CHROMIUM) [Concomitant]
     Indication: PRODUCT USED FOR UNKNOWN INDICATION
     Dosage: 500 MG, QD
     Route: 048
  6. NIACIN (NICOTINIC ACID) [Concomitant]
     Indication: HYPERCHOLESTEROLAEMIA
     Dosage: 1000 MG, QD
     Route: 048
  7. CLOZAPINE. [Suspect]
     Active Substance: CLOZAPINE
     Indication: SCHIZOPHRENIA
     Dosage: 12.5 MG, QD
     Route: 065
  8. LITHIUM. [Concomitant]
     Active Substance: LITHIUM
     Indication: PRODUCT USED FOR UNKNOWN INDICATION
     Dosage: 600 MG, QD
     Route: 048
  9. CLOZAPINE. [Suspect]
     Active Substance: CLOZAPINE
     Dosage: 150 MG, QD
     Route: 048

REACTIONS (10)
  - Pleural effusion [Unknown]
  - Haematuria [Unknown]
  - Jaundice [Unknown]
  - Hyperglycaemia [Unknown]
  - Sexual dysfunction [Unknown]
  - Proteinuria [Unknown]
  - Hepatitis B [Recovered/Resolved]
  - Idiosyncratic drug reaction [Unknown]
  - Hepatitis cholestatic [Unknown]
  - Eosinophilia [Unknown]
